FAERS Safety Report 8264155-3 (Version None)
Quarter: 2012Q2

REPORT INFORMATION
  Report Type: 
  Country: None (occurrence: None)
  Receive Date: 20120406
  Receipt Date: 20120324
  Transmission Date: 20120825
  Serious: Yes (Other)
  Sender: FDA-Public Use
  Company Number: PT-PAR PHARMACEUTICAL, INC-2012SCPR004294

PATIENT

DRUGS (7)
  1. LENALIDOMIDE [Suspect]
     Dosage: 15 MG, / DAY X 21 DAYS
     Route: 065
  2. LENALIDOMIDE [Suspect]
     Indication: MULTIPLE MYELOMA
     Dosage: 25 MG, / DAY; DAYS 1-21 OF  28 DAYS CYCLES
     Route: 065
  3. BISPHOSPHONATES [Concomitant]
     Indication: PRODUCT USED FOR UNKNOWN INDICATION
     Dosage: UNK, UNKNOWN
     Route: 065
  4. LENALIDOMIDE [Suspect]
     Dosage: UNK, DOSE REDUCTION DUE TO GOOD THERAPY RESPONSE
     Route: 065
  5. UNSPECIFIED MEDICATION [Concomitant]
     Indication: INFECTION PROPHYLAXIS
     Dosage: UNK, UNKNOWN
     Route: 065
  6. DEXAMETHASONE [Suspect]
     Indication: MULTIPLE MYELOMA
     Dosage: 40 MG, / DAY; ON DAYS 1-4 OF 28 DAYS CYCLE
     Route: 065
  7. EPOGEN [Concomitant]
     Indication: PRODUCT USED FOR UNKNOWN INDICATION
     Dosage: UNK, UNKNOWN
     Route: 065

REACTIONS (2)
  - NEUTROPENIA [None]
  - UPPER RESPIRATORY TRACT INFECTION [None]
